FAERS Safety Report 23340252 (Version 1)
Quarter: 2023Q4

REPORT INFORMATION
  Report Type: Spontaneous
  Country: US (occurrence: US)
  Receive Date: 20231227
  Receipt Date: 20231227
  Transmission Date: 20240110
  Serious: No
  Sender: FDA-Public Use
  Company Number: US-PADAGIS-2023PAD01821

PATIENT

DRUGS (1)
  1. BACITRACIN [Suspect]
     Active Substance: BACITRACIN
     Indication: Wound
     Dosage: UNK, UNK
     Route: 065

REACTIONS (4)
  - Application site pruritus [Unknown]
  - Swelling of eyelid [Unknown]
  - Swelling face [Unknown]
  - Product use in unapproved indication [Unknown]
